FAERS Safety Report 10411975 (Version 2)
Quarter: 2015Q3

REPORT INFORMATION
  Report Type: Spontaneous
  Country: DK (occurrence: DK)
  Receive Date: 20140827
  Receipt Date: 20150820
  Transmission Date: 20151125
  Serious: Yes (Hospitalization)
  Sender: FDA-Public Use
  Company Number: PHHY2014DK104814

PATIENT
  Age: 50 Year
  Sex: Male
  Weight: 70 kg

DRUGS (2)
  1. ZOMETA [Suspect]
     Active Substance: ZOLEDRONIC ACID
     Indication: OFF LABEL USE
  2. ZOMETA [Suspect]
     Active Substance: ZOLEDRONIC ACID
     Indication: METASTATIC RENAL CELL CARCINOMA
     Dosage: 4 MG
     Route: 042
     Dates: start: 20080304, end: 20111109

REACTIONS (4)
  - Infection [Unknown]
  - Exposed bone in jaw [Not Recovered/Not Resolved]
  - Osteonecrosis of jaw [Not Recovered/Not Resolved]
  - Fistula [Unknown]

NARRATIVE: CASE EVENT DATE: 20100316
